FAERS Safety Report 9290719 (Version 3)
Quarter: 2013Q2

REPORT INFORMATION
  Report Type: Spontaneous
  Country: US (occurrence: None)
  Receive Date: 20130513
  Receipt Date: 20130528
  Transmission Date: 20140414
  Serious: Yes (Death)
  Sender: FDA-Public Use
  Company Number: AMAG201300075

PATIENT
  Age: 40 Year
  Sex: Male

DRUGS (2)
  1. FERAHEME (FERUMOXYTOL) INJECTION, 510MG [Suspect]
     Indication: IRON DEFICIENCY ANAEMIA
     Route: 042
     Dates: start: 20130426
  2. HUMIRA [Concomitant]

REACTIONS (1)
  - Cardiac arrest [None]
